FAERS Safety Report 25040866 (Version 1)
Quarter: 2025Q1

REPORT INFORMATION
  Report Type: Spontaneous
  Country: US (occurrence: None)
  Receive Date: 20250304
  Receipt Date: 20250304
  Transmission Date: 20250409
  Serious: Yes (Other)
  Sender: FDA-CTU
  Company Number: None

PATIENT
  Age: 44 Year
  Sex: Male
  Weight: 80.5 kg

DRUGS (1)
  1. INCLISIRAN [Suspect]
     Active Substance: INCLISIRAN

REACTIONS (3)
  - Injection site discolouration [None]
  - Injection site pruritus [None]
  - Injection site rash [None]

NARRATIVE: CASE EVENT DATE: 20250127
